FAERS Safety Report 9290314 (Version 4)
Quarter: 2013Q3

REPORT INFORMATION
  Report Type: Spontaneous
  Country: US (occurrence: US)
  Receive Date: 20130515
  Receipt Date: 20130802
  Transmission Date: 20140515
  Serious: Yes (Hospitalization)
  Sender: FDA-Public Use
  Company Number: US-ASTELLAS-2013US004967

PATIENT
  Sex: Male

DRUGS (15)
  1. PROGRAF [Suspect]
     Indication: HEART TRANSPLANT
     Dosage: 0.4 MG, BID
     Route: 048
     Dates: start: 20130410
  2. PROGRAF [Suspect]
     Dosage: 0.45 MG, BID
     Route: 048
     Dates: start: 20130425, end: 20130430
  3. PROGRAF [Suspect]
     Dosage: 0.8 MG, BID
     Route: 048
     Dates: start: 20130604, end: 20130612
  4. PROGRAF [Suspect]
     Dosage: 1 MG, BID
     Route: 048
     Dates: start: 20130520, end: 20130528
  5. ANTIBIOTICS [Suspect]
     Indication: PRODUCT USED FOR UNKNOWN INDICATION
     Dosage: UNK
     Route: 065
  6. LASIX                              /00032601/ [Concomitant]
     Indication: PRODUCT USED FOR UNKNOWN INDICATION
     Dosage: 40 MG, BID
     Route: 048
  7. LASIX                              /00032601/ [Concomitant]
     Dosage: 40 MG, UID/QD
     Route: 048
     Dates: start: 20130513
  8. CELLCEPT                           /01275102/ [Concomitant]
     Indication: PRODUCT USED FOR UNKNOWN INDICATION
     Dosage: 100 MG, BID
     Route: 048
  9. CELLCEPT                           /01275102/ [Concomitant]
     Dosage: 1000 MG, BID
     Route: 048
  10. PEPCID                             /00706001/ [Concomitant]
     Indication: PRODUCT USED FOR UNKNOWN INDICATION
     Dosage: 20 MG, QPM
     Route: 048
  11. ENALAPRIL [Concomitant]
     Indication: PRODUCT USED FOR UNKNOWN INDICATION
     Dosage: 7 MG, BID
     Route: 048
  12. ENALAPRIL [Concomitant]
     Dosage: 8 MG, BID
  13. VALCYTE [Concomitant]
     Indication: PRODUCT USED FOR UNKNOWN INDICATION
     Dosage: 900 MG, UID/QD
     Route: 048
  14. VORICONAZOLE [Concomitant]
     Indication: PRODUCT USED FOR UNKNOWN INDICATION
     Dosage: 200 MG, BID
     Route: 048
  15. BACTRIM [Concomitant]
     Indication: PROPHYLAXIS
     Dosage: 160 MG, QMWF
     Route: 048

REACTIONS (6)
  - Drug ineffective [Unknown]
  - Laryngeal stenosis [Recovered/Resolved]
  - Transplant rejection [Unknown]
  - Blood pressure systolic increased [Recovered/Resolved]
  - Diarrhoea [Recovered/Resolved]
  - Pain [Recovered/Resolved]
